FAERS Safety Report 5270602-1 (Version None)
Quarter: 2007Q1

REPORT INFORMATION
  Report Type: 
  Country: None (occurrence: None)
  Receive Date: 20070315
  Receipt Date: 20070308
  Transmission Date: 20070707
  Serious: Yes (Death, Other)
  Sender: FDA-Public Use
  Company Number: 163-20785-06091192

PATIENT
  Age: 89 Year
  Sex: Female

DRUGS (12)
  1. THALOMID [Suspect]
     Indication: MULTIPLE MYELOMA
     Dosage: 50 MG, 1 IN 1 D, ORAL
     Route: 048
     Dates: start: 20060517, end: 20060801
  2. THALOMID [Suspect]
     Indication: MULTIPLE MYELOMA
     Dosage: 50 MG, 1 IN 1 D, ORAL
     Route: 048
     Dates: start: 20060815, end: 20060920
  3. LOVENOX [Concomitant]
  4. ALLOPURINOL [Concomitant]
  5. NEXIUM [Concomitant]
  6. FUROSEMIDE [Concomitant]
  7. HYZAAR [Concomitant]
  8. NEURONTIN [Concomitant]
  9. DETROL [Concomitant]
  10. DEXAMETHASONE TAB [Concomitant]
  11. HYDREA [Concomitant]
  12. COUMADIN [Concomitant]

REACTIONS (12)
  - CARDIO-RESPIRATORY ARREST [None]
  - COMPRESSION FRACTURE [None]
  - DISEASE PROGRESSION [None]
  - INTERNATIONAL NORMALISED RATIO INCREASED [None]
  - MULTIPLE MYELOMA [None]
  - MYOCARDIAL INFARCTION [None]
  - NO THERAPEUTIC RESPONSE [None]
  - OSTEOPOROSIS [None]
  - PULMONARY EMBOLISM [None]
  - SPINAL FRACTURE [None]
  - THROMBOCYTHAEMIA [None]
  - THROMBOSIS [None]
